FAERS Safety Report 16465278 (Version 1)
Quarter: 2019Q2

REPORT INFORMATION
  Report Type: Spontaneous
  Country: US (occurrence: US)
  Receive Date: 20190621
  Receipt Date: 20190621
  Transmission Date: 20190711
  Serious: Yes (Other)
  Sender: FDA-Public Use
  Company Number: US-BAUSCH-BL-2019-017388

PATIENT
  Age: 46 Year
  Sex: Male

DRUGS (10)
  1. XYREM [Concomitant]
     Active Substance: SODIUM OXYBATE
     Indication: CATAPLEXY
     Dosage: RE-STARTED
  2. FLUOXETINE [Concomitant]
     Active Substance: FLUOXETINE HYDROCHLORIDE
     Indication: NARCOLEPSY
  3. MODAFINIL. [Concomitant]
     Active Substance: MODAFINIL
     Indication: CATAPLEXY
  4. MODAFINIL. [Concomitant]
     Active Substance: MODAFINIL
     Indication: NARCOLEPSY
     Dosage: 200 MG TABLET IN THE MORNING AND 100 MG IN THE AFTERNOON
  5. VENLAFAXINE 225 MG XL [Concomitant]
     Indication: NARCOLEPSY
  6. VENLAFAXINE [Suspect]
     Active Substance: VENLAFAXINE HYDROCHLORIDE
     Indication: CATAPLEXY
     Route: 065
  7. VENLAFAXINE 225 MG XL [Concomitant]
     Indication: CATAPLEXY
     Dosage: EXTENDED RELEASE
  8. FLUOXETINE [Concomitant]
     Active Substance: FLUOXETINE HYDROCHLORIDE
     Indication: CATAPLEXY
  9. VENLAFAXINE [Suspect]
     Active Substance: VENLAFAXINE HYDROCHLORIDE
     Indication: NARCOLEPSY
  10. XYREM [Concomitant]
     Active Substance: SODIUM OXYBATE
     Indication: NARCOLEPSY
     Dosage: PARTICIPATED IN XYREM TRIAL STUDIES IN 2003

REACTIONS (2)
  - Cataplexy [Recovered/Resolved]
  - Wrong dose [Unknown]
